FAERS Safety Report 5224894-5 (Version None)
Quarter: 2007Q1

REPORT INFORMATION
  Report Type: 
  Country: None (occurrence: None)
  Receive Date: 20070126
  Receipt Date: 20070117
  Transmission Date: 20070707
  Serious: Yes (Death, Life-Threatening, Hospitalization, Disabling)
  Sender: FDA-Public Use
  Company Number: 2007-00083

PATIENT
  Age: 65 Year
  Sex: Female
  Weight: 84 kg

DRUGS (8)
  1. VELCADE [Suspect]
     Indication: MULTIPLE MYELOMA
     Dosage: INTRAVENOUS
     Route: 042
     Dates: start: 20060309, end: 20060409
  2. FENTANYL [Concomitant]
  3. RESPRIM (SULFAMETHOXAZOLE, TRIMETHOPRIM) [Concomitant]
  4. AREDIA [Concomitant]
  5. METHADONE HCL [Concomitant]
  6. ALLORIL (ALLOPURINOL) [Concomitant]
  7. CEFORAL (CEFALEXIN MONOHYDRATE) [Concomitant]
  8. FUROSEMIDE [Concomitant]

REACTIONS (10)
  - CONVULSION [None]
  - ENCEPHALITIS [None]
  - FACIAL PALSY [None]
  - LOSS OF CONSCIOUSNESS [None]
  - MENINGITIS BACTERIAL [None]
  - MENINGITIS PNEUMOCOCCAL [None]
  - NO THERAPEUTIC RESPONSE [None]
  - RESPIRATORY FAILURE [None]
  - SEPSIS [None]
  - URINARY TRACT INFECTION [None]
